FAERS Safety Report 16863042 (Version 2)
Quarter: 2020Q3

REPORT INFORMATION
  Report Type: Spontaneous
  Country: US (occurrence: US)
  Receive Date: 20190927
  Receipt Date: 20200831
  Transmission Date: 20201102
  Serious: Yes (Death, Hospitalization, Other)
  Sender: FDA-Public Use
  Company Number: US-GILEAD-2019-0429241

PATIENT
  Age: 53 Year
  Sex: Male
  Weight: 84.81 kg

DRUGS (15)
  1. ATRIPLA [Suspect]
     Active Substance: EFAVIRENZ\EMTRICITABINE\TENOFOVIR DISOPROXIL FUMARATE
     Indication: HIV INFECTION
     Dosage: UNK
     Route: 048
     Dates: start: 200608, end: 2011
  2. FUZEON [Concomitant]
     Active Substance: ENFUVIRTIDE
  3. FUROSEMIDE. [Concomitant]
     Active Substance: FUROSEMIDE
  4. ASPIRIN 81 [Concomitant]
     Active Substance: ASPIRIN
  5. TRUVADA [Suspect]
     Active Substance: EMTRICITABINE\TENOFOVIR DISOPROXIL FUMARATE
     Dosage: UNK
     Route: 048
     Dates: start: 2016
  6. TRUVADA [Suspect]
     Active Substance: EMTRICITABINE\TENOFOVIR DISOPROXIL FUMARATE
     Indication: HIV INFECTION
     Dosage: UNK
     Route: 048
     Dates: start: 200607
  7. LOSARTAN. [Concomitant]
     Active Substance: LOSARTAN
  8. DESCOVY [Concomitant]
     Active Substance: EMTRICITABINE\TENOFOVIR ALAFENAMIDE FUMARATE
  9. SUSTIVA [Concomitant]
     Active Substance: EFAVIRENZ
  10. CARVEDILOL. [Concomitant]
     Active Substance: CARVEDILOL
  11. EMTRIVA [Concomitant]
     Active Substance: EMTRICITABINE
  12. ISENTRESS [Concomitant]
     Active Substance: RALTEGRAVIR POTASSIUM
  13. LIPITOR ORIFARM [Concomitant]
     Active Substance: ATORVASTATIN CALCIUM
  14. ISENTRESS [Concomitant]
     Active Substance: RALTEGRAVIR POTASSIUM
  15. INSULIN [Concomitant]
     Active Substance: INSULIN NOS

REACTIONS (8)
  - Chronic kidney disease [Fatal]
  - End stage renal disease [Recovered/Resolved]
  - Anxiety [Not Recovered/Not Resolved]
  - Chronic kidney disease-mineral and bone disorder [Recovered/Resolved]
  - Anhedonia [Not Recovered/Not Resolved]
  - Pain [Not Recovered/Not Resolved]
  - Emotional distress [Not Recovered/Not Resolved]
  - Economic problem [Not Recovered/Not Resolved]

NARRATIVE: CASE EVENT DATE: 2007
